FAERS Safety Report 8845888 (Version 9)
Quarter: 2014Q3

REPORT INFORMATION
  Report Type: Spontaneous
  Country: US (occurrence: US)
  Receive Date: 20121017
  Receipt Date: 20140801
  Transmission Date: 20150326
  Serious: Yes (Hospitalization, Other)
  Sender: FDA-Public Use
  Company Number: US-009507513-1210USA005846

PATIENT
  Sex: Female
  Weight: 54.42 kg

DRUGS (2)
  1. NUVARING [Suspect]
     Active Substance: ETHINYL ESTRADIOL\ETONOGESTREL
     Indication: ENDOMETRIOSIS
  2. NUVARING [Suspect]
     Active Substance: ETHINYL ESTRADIOL\ETONOGESTREL
     Indication: PELVIC PAIN
     Dosage: 1 RING/MONTH
     Route: 067
     Dates: start: 20110615, end: 20110802

REACTIONS (26)
  - Ovarian cystectomy [Unknown]
  - Vaginal cyst [Unknown]
  - Protein S deficiency [Not Recovered/Not Resolved]
  - Depressed mood [Unknown]
  - Deep vein thrombosis [Unknown]
  - Umbilical hernia repair [Recovered/Resolved]
  - Rash [Unknown]
  - Dermatitis contact [Unknown]
  - Appendicectomy [Unknown]
  - Myalgia [Unknown]
  - Headache [Unknown]
  - Pleuropericarditis [Not Recovered/Not Resolved]
  - Drug hypersensitivity [Unknown]
  - Diarrhoea [Unknown]
  - Costochondritis [Unknown]
  - Vitamin D deficiency [Unknown]
  - Pulmonary embolism [Recovered/Resolved]
  - Chest pain [Not Recovered/Not Resolved]
  - Pleurisy [Unknown]
  - Adverse drug reaction [Unknown]
  - Appendix disorder [Unknown]
  - Off label use [Unknown]
  - Pain [Unknown]
  - Vaginal haemorrhage [Unknown]
  - Headache [Unknown]
  - Hepatic cyst [Unknown]

NARRATIVE: CASE EVENT DATE: 20110615
